FAERS Safety Report 18798513 (Version 6)
Quarter: 2021Q2

REPORT INFORMATION
  Report Type: Spontaneous
  Country: US (occurrence: US)
  Receive Date: 20210128
  Receipt Date: 20210614
  Transmission Date: 20210717
  Serious: Yes (Other)
  Sender: FDA-Public Use
  Company Number: US-PFIZER INC-2021028247

PATIENT
  Age: 64 Year
  Sex: Female

DRUGS (2)
  1. PREMARIN [Suspect]
     Active Substance: ESTROGENS, CONJUGATED
     Indication: CATARACT
     Dosage: 0.5 G, 2X/WEEK
     Route: 067
     Dates: start: 20210426
  2. PREMARIN [Suspect]
     Active Substance: ESTROGENS, CONJUGATED
     Indication: VAGINAL DISORDER

REACTIONS (4)
  - Glaucoma [Not Recovered/Not Resolved]
  - Off label use [Unknown]
  - Diabetes mellitus [Unknown]
  - Product prescribing error [Unknown]
